FAERS Safety Report 7209794-3 (Version None)
Quarter: 2011Q1

REPORT INFORMATION
  Report Type: 
  Country: None (occurrence: None)
  Receive Date: 20110104
  Receipt Date: 20101231
  Transmission Date: 20110831
  Serious: Yes (Death, Other)
  Sender: FDA-Public Use
  Company Number: PL-BAXTER-2010BH029222

PATIENT
  Age: 58 Year
  Sex: Female

DRUGS (24)
  1. ANTIBIOTICS [Concomitant]
     Indication: PRODUCT USED FOR UNKNOWN INDICATION
     Route: 065
  2. TRAMAL [Concomitant]
     Indication: PRODUCT USED FOR UNKNOWN INDICATION
  3. ENOXAPARIN SODIUM [Concomitant]
     Indication: PRODUCT USED FOR UNKNOWN INDICATION
  4. PYRALGINUM [Concomitant]
     Indication: PRODUCT USED FOR UNKNOWN INDICATION
  5. EPOGEN [Concomitant]
     Indication: PRODUCT USED FOR UNKNOWN INDICATION
  6. DIANEAL [Suspect]
     Route: 033
     Dates: end: 20101115
  7. TAZOCIN [Concomitant]
     Indication: PRODUCT USED FOR UNKNOWN INDICATION
  8. EXTRANEAL [Suspect]
     Indication: PERITONEAL DIALYSIS
     Route: 033
     Dates: end: 20101115
  9. FRESH FROZEN PLASMA [Concomitant]
     Indication: PRODUCT USED FOR UNKNOWN INDICATION
  10. METODOPRAMID [Concomitant]
     Indication: PRODUCT USED FOR UNKNOWN INDICATION
     Route: 065
  11. INSULIN [Concomitant]
     Indication: PRODUCT USED FOR UNKNOWN INDICATION
  12. SODIUM BICARBONATE [Concomitant]
     Indication: PRODUCT USED FOR UNKNOWN INDICATION
     Route: 065
  13. DIANEAL [Suspect]
     Route: 033
     Dates: end: 20101115
  14. OMEPRAZOLUM [Concomitant]
     Indication: PRODUCT USED FOR UNKNOWN INDICATION
  15. METRONIDAZOLE [Concomitant]
     Indication: PRODUCT USED FOR UNKNOWN INDICATION
  16. RED BLOOD CELLS, CONCENTRATED [Concomitant]
     Indication: PRODUCT USED FOR UNKNOWN INDICATION
  17. LEVONOR [Concomitant]
     Indication: PRODUCT USED FOR UNKNOWN INDICATION
  18. DOBUTREX [Concomitant]
     Indication: PRODUCT USED FOR UNKNOWN INDICATION
  19. DOPAMINE [Concomitant]
     Indication: PRODUCT USED FOR UNKNOWN INDICATION
  20. DIANEAL [Suspect]
     Indication: PERITONEAL DIALYSIS
     Route: 033
     Dates: end: 20101115
  21. EDICIN [Concomitant]
     Indication: PRODUCT USED FOR UNKNOWN INDICATION
  22. BETALOC [Concomitant]
     Indication: PRODUCT USED FOR UNKNOWN INDICATION
  23. NEFROTEC [Concomitant]
     Indication: PRODUCT USED FOR UNKNOWN INDICATION
     Route: 065
  24. AMIODARONE [Concomitant]
     Indication: PRODUCT USED FOR UNKNOWN INDICATION
     Route: 065

REACTIONS (4)
  - CARDIOVASCULAR INSUFFICIENCY [None]
  - SEPTIC SHOCK [None]
  - PERITONITIS [None]
  - RESPIRATORY FAILURE [None]
